FAERS Safety Report 5317993-0 (Version None)
Quarter: 2007Q1

REPORT INFORMATION
  Report Type: 
  Country: None (occurrence: None)
  Receive Date: 20070201
  Receipt Date: 20060727
  Transmission Date: 20070707
  Serious: Yes (Other)
  Sender: FDA-Public Use
  Company Number: USEN-6S4QL6

PATIENT

DRUGS (2)
  1. DURAPREP [Suspect]
     Indication: PREOPERATIVE CARE
     Dosage: 26 ML TOPICAL
     Route: 061
  2. DURAPREP [Suspect]
     Indication: SKIN DISORDER
     Dosage: 26 ML TOPICAL
     Route: 061

REACTIONS (1)
  - SKIN IRRITATION [None]
